FAERS Safety Report 23002398 (Version 2)
Quarter: 2024Q1

REPORT INFORMATION
  Report Type: Spontaneous
  Country: US (occurrence: US)
  Receive Date: 20230928
  Receipt Date: 20240101
  Transmission Date: 20240410
  Serious: Yes (Other)
  Sender: FDA-Public Use
  Company Number: US-JNJFOC-20230946535

PATIENT
  Sex: Male

DRUGS (1)
  1. TECLISTAMAB [Suspect]
     Active Substance: TECLISTAMAB
     Indication: Plasma cell myeloma refractory
     Route: 058

REACTIONS (2)
  - Herpes oesophagitis [Recovered/Resolved]
  - Oesophageal candidiasis [Recovering/Resolving]
